FAERS Safety Report 7793834-7 (Version None)
Quarter: 2011Q4

REPORT INFORMATION
  Report Type: 
  Country: None (occurrence: None)
  Receive Date: 20111004
  Receipt Date: 20110922
  Transmission Date: 20120403
  Serious: Yes (Life-Threatening, Hospitalization)
  Sender: FDA-Public Use
  Company Number: JP-AMGEN-JPNSP2011046327

PATIENT
  Age: 73 Year
  Sex: Male
  Weight: 59.7 kg

DRUGS (11)
  1. ENBREL [Suspect]
     Dosage: 25 MG, WEEKLY
     Dates: start: 20080229, end: 20100302
  2. METHOTREXATE SODIUM [Suspect]
     Dosage: 6 MG, WEEKLY
     Route: 048
     Dates: start: 20080216, end: 20080228
  3. FOLIC ACID [Concomitant]
     Indication: PROPHYLAXIS
     Dosage: 5 MG, 1X/DAY
     Route: 048
     Dates: start: 20101019
  4. ENBREL [Suspect]
     Indication: RHEUMATOID ARTHRITIS
     Dosage: 25 MG, 2X/WEEK
     Dates: start: 20080216, end: 20080225
  5. ENBREL [Suspect]
     Dosage: 25 MG, WEEKLY
     Dates: start: 20100413, end: 20110816
  6. LANSOPRAZOLE [Concomitant]
     Indication: GASTROOESOPHAGEAL REFLUX DISEASE
     Dosage: 15 MG, 1X/DAY
     Route: 048
     Dates: start: 20070101
  7. METHOTREXATE SODIUM [Suspect]
     Dosage: 2 MG, 2 TIMES/WK
     Route: 048
  8. PROGRAF [Suspect]
     Indication: RHEUMATOID ARTHRITIS
     Dosage: 1 MG, 1X/DAY
     Route: 048
     Dates: start: 20081212, end: 20110906
  9. METHOTREXATE SODIUM [Suspect]
     Indication: RHEUMATOID ARTHRITIS
     Dosage: 2 MG, 2X/WEEK
     Route: 048
     Dates: start: 20080201
  10. KETOPROFEN [Concomitant]
     Indication: RHEUMATOID ARTHRITIS
     Dosage: 20 MG, AS NEEDED
     Route: 062
     Dates: start: 20071004
  11. METHOTREXATE SODIUM [Suspect]
     Dosage: 8 MG, WEEKLY
     Route: 048
     Dates: start: 20080229, end: 20101213

REACTIONS (1)
  - GASTRIC CANCER [None]
